FAERS Safety Report 8200561-0 (Version None)
Quarter: 2012Q1

REPORT INFORMATION
  Report Type: 
  Country: None (occurrence: None)
  Receive Date: 20120302
  Receipt Date: 20120221
  Transmission Date: 20120608
  Serious: Yes (Death)
  Sender: FDA-Public Use
  Company Number: 2012031347

PATIENT
  Age: 70 Year
  Sex: Female
  Weight: 58.9676 kg

DRUGS (13)
  1. CENTRUM SILVER (CENTRUM SILVER) [Concomitant]
  2. CELEBREX [Concomitant]
  3. SYNTHROID [Concomitant]
  4. HIZENTRA [Suspect]
  5. CLIMARA [Concomitant]
  6. CALCIUM CARBONATE [Concomitant]
  7. GABAPENTIN [Concomitant]
  8. HIZENTRA [Suspect]
     Indication: IMMUNODEFICIENCY COMMON VARIABLE
     Dosage: (9 G 1X/WEEK, (45ML) MULTIPLE SITES SUBCUTANEOUS), (SUBCUTANEOUS)
     Route: 058
     Dates: start: 20120215
  9. HIZENTRA [Suspect]
     Indication: IMMUNODEFICIENCY COMMON VARIABLE
     Dosage: (9 G 1X/WEEK, (45ML) MULTIPLE SITES SUBCUTANEOUS), (SUBCUTANEOUS)
     Route: 058
     Dates: start: 20120215
  10. DIOVAN [Concomitant]
  11. PROMETRIUM [Concomitant]
  12. DOMPERIDONE (DOMPERIDONE) [Concomitant]
  13. ZONISAMIDE [Concomitant]

REACTIONS (1)
  - DEATH [None]
